FAERS Safety Report 8911568 (Version 1)
Quarter: 2012Q4

REPORT INFORMATION
  Report Type: 
  Country: SE (occurrence: SE)
  Receive Date: 20121116
  Receipt Date: 20121116
  Transmission Date: 20130627
  Serious: Yes (Hospitalization)
  Sender: FDA-Public Use
  Company Number: SE-PFIZER INC-2012281099

PATIENT
  Age: 65 Year
  Sex: Male
  Weight: 116 kg

DRUGS (4)
  1. GENOTROPIN [Suspect]
     Dosage: 0.1 mg, 1x/day, 7 injections/week
     Route: 058
     Dates: start: 20110119
  2. LEVOTHYROXINE [Concomitant]
     Indication: BLOOD THYROID STIMULATING HORMONE DECREASED
     Dosage: UNK
     Dates: start: 20101014
  3. LEVOTHYROXINE [Concomitant]
     Indication: PRIMARY HYPOTHYROIDISM
  4. CABASER [Concomitant]
     Dosage: UNK
     Dates: start: 20101026

REACTIONS (1)
  - Endocrine disorder [Unknown]
